FAERS Safety Report 14967115 (Version 1)
Quarter: 2018Q2

REPORT INFORMATION
  Report Type: Spontaneous
  Country: US (occurrence: US)
  Receive Date: 20180511
  Receipt Date: 20180511
  Transmission Date: 20180711
  Serious: Yes (Other)
  Sender: FDA-Public Use
  Company Number: None

PATIENT
  Age: 49 Year
  Sex: Male
  Weight: 119.25 kg

DRUGS (1)
  1. LIDOCAINE PATCH 5% [Suspect]
     Active Substance: LIDOCAINE
     Indication: NEURALGIA
     Dosage: QUANTITY:1 PATCH(ES);?
     Route: 062
     Dates: start: 20180510, end: 20180511

REACTIONS (3)
  - Product adhesion issue [None]
  - Product substitution issue [None]
  - Drug ineffective [None]

NARRATIVE: CASE EVENT DATE: 20180511
